FAERS Safety Report 7464831-6 (Version None)
Quarter: 2011Q2

REPORT INFORMATION
  Report Type: 
  Country: None (occurrence: None)
  Receive Date: 20110509
  Receipt Date: 20110504
  Transmission Date: 20111010
  Serious: No
  Sender: FDA-Public Use
  Company Number: US-PFIZER INC-2011096493

PATIENT
  Sex: Female
  Weight: 58.957 kg

DRUGS (5)
  1. NAPROXEN (ALEVE) [Concomitant]
     Indication: PAIN
     Dosage: UNK
     Dates: end: 20110401
  2. PROTONIX [Suspect]
     Dosage: 40 MG, 2X/DAY
     Dates: start: 20110503
  3. VITAMINS [Concomitant]
     Dosage: UNK
  4. ESTROGENS [Concomitant]
     Dosage: UNK
  5. PROTONIX [Suspect]
     Indication: GASTROOESOPHAGEAL REFLUX DISEASE
     Dosage: 40 MG, 1X/DAY
     Dates: start: 20110401

REACTIONS (1)
  - DRUG INEFFECTIVE [None]
